FAERS Safety Report 18658339 (Version 1)
Quarter: 2020Q4

REPORT INFORMATION
  Report Type: Spontaneous
  Country: US (occurrence: US)
  Receive Date: 20201224
  Receipt Date: 20201224
  Transmission Date: 20210114
  Serious: Yes (Death, Hospitalization, Other)
  Sender: FDA-Public Use
  Company Number: US-ADVANZ PHARMA-202012011102

PATIENT

DRUGS (2)
  1. HYDROXYCHLOROQUINE [Suspect]
     Active Substance: HYDROXYCHLOROQUINE
     Indication: COVID-19
     Dosage: 200 MG, BID
     Route: 065
     Dates: start: 2020, end: 2020
  2. HYDROXYCHLOROQUINE [Suspect]
     Active Substance: HYDROXYCHLOROQUINE
     Indication: PRODUCT USE IN UNAPPROVED INDICATION

REACTIONS (10)
  - Off label use [Fatal]
  - Cardiotoxicity [Fatal]
  - Acute kidney injury [Fatal]
  - Nephropathy toxic [Fatal]
  - Kidney fibrosis [Fatal]
  - Renal phospholipidosis [Fatal]
  - Electrocardiogram QT prolonged [Fatal]
  - Anuria [Fatal]
  - Renal tubular atrophy [Fatal]
  - Pulmonary embolism [Fatal]

NARRATIVE: CASE EVENT DATE: 2020
